FAERS Safety Report 6880499-1 (Version None)
Quarter: 2010Q3

REPORT INFORMATION
  Report Type: 
  Country: None (occurrence: None)
  Receive Date: 20100727
  Receipt Date: 20100719
  Transmission Date: 20110219
  Serious: Yes (Other)
  Sender: FDA-Public Use
  Company Number: A0871994A

PATIENT
  Sex: Male

DRUGS (4)
  1. COMBIVIR [Suspect]
     Indication: ANTIRETROVIRAL THERAPY
     Dates: start: 20090305, end: 20100415
  2. PREZISTA [Suspect]
     Indication: ANTIRETROVIRAL THERAPY
     Dosage: 800MGD PER DAY
     Dates: start: 20071120, end: 20090305
  3. NORVIR [Suspect]
     Indication: ANTIRETROVIRAL THERAPY
     Dosage: 100MGD PER DAY
     Dates: start: 20071120, end: 20090305
  4. KALETRA [Suspect]
     Indication: ANTIRETROVIRAL THERAPY
     Dates: start: 20090305, end: 20100415

REACTIONS (3)
  - CONGENITAL ANOMALY [None]
  - DRUG EXPOSURE DURING PREGNANCY [None]
  - PREMATURE BABY [None]
